FAERS Safety Report 4685650-X (Version None)
Quarter: 2005Q2

REPORT INFORMATION
  Report Type: 
  Country: None (occurrence: None)
  Receive Date: 20050608
  Receipt Date: 20050214
  Transmission Date: 20051028
  Serious: Yes (Disabling)
  Sender: FDA-Public Use
  Company Number: US-MERCK-0502USA01894

PATIENT
  Age: 46 Year
  Sex: Male
  Weight: 73 kg

DRUGS (4)
  1. VIOXX [Suspect]
     Indication: INTERVERTEBRAL DISC PROTRUSION
     Route: 048
     Dates: start: 20020101, end: 20030222
  2. VIOXX [Suspect]
     Route: 065
     Dates: start: 20020101, end: 20020101
  3. VICODIN [Concomitant]
     Route: 065
  4. SKELAXIN [Concomitant]
     Route: 065

REACTIONS (10)
  - ANGINA PECTORIS [None]
  - CARDIAC FAILURE CONGESTIVE [None]
  - CARDIAC VALVE DISEASE [None]
  - DEEP VEIN THROMBOSIS [None]
  - DYSPNOEA [None]
  - EMOTIONAL DISTRESS [None]
  - HEART INJURY [None]
  - HEART RATE IRREGULAR [None]
  - HYPERTENSION [None]
  - OEDEMA PERIPHERAL [None]
